FAERS Safety Report 5406177-3 (Version None)
Quarter: 2007Q3

REPORT INFORMATION
  Report Type: 
  Country: None (occurrence: None)
  Receive Date: 20070806
  Receipt Date: 20070724
  Transmission Date: 20080115
  Serious: Yes (Hospitalization)
  Sender: FDA-Public Use
  Company Number: AU-ASTRAZENECA-2007AP01151

PATIENT
  Age: 8683 Day
  Sex: Male
  Weight: 58 kg

DRUGS (4)
  1. NEXIUM [Suspect]
     Route: 048
     Dates: start: 20070201, end: 20070213
  2. RABEPRAZOLE SODIUM [Concomitant]
     Indication: ULCER
     Route: 048
  3. SEROQUEL [Concomitant]
     Indication: ANXIETY DISORDER
     Route: 048
     Dates: start: 20030101
  4. LUVOX [Concomitant]
     Indication: DEPRESSION
     Route: 048
     Dates: start: 20030101

REACTIONS (4)
  - CELLULITIS [None]
  - ERYTHEMA NODOSUM [None]
  - LETHARGY [None]
  - WEIGHT DECREASED [None]
